FAERS Safety Report 4448571-3 (Version None)
Quarter: 2004Q3

REPORT INFORMATION
  Report Type: 
  Country: None (occurrence: None)
  Receive Date: 20040909
  Receipt Date: 20040824
  Transmission Date: 20050211
  Serious: Yes (Death)
  Sender: FDA-Public Use
  Company Number: DSA_24881_2004

PATIENT
  Age: 37 Year
  Sex: Male

DRUGS (4)
  1. TEMESTA [Suspect]
     Indication: DEPRESSION
     Dosage: 1 MG Q DAY PO
     Route: 048
     Dates: start: 20040302, end: 20040322
  2. TEMESTA [Suspect]
     Indication: DEPRESSION
     Dosage: 2 MG Q DAY PO
     Route: 048
     Dates: start: 20040301, end: 20040301
  3. CIPRALEX [Concomitant]
  4. REMERON [Concomitant]

REACTIONS (2)
  - COMPLETED SUICIDE [None]
  - GUN SHOT WOUND [None]
